FAERS Safety Report 17783265 (Version 1)
Quarter: 2020Q2

REPORT INFORMATION
  Report Type: Spontaneous
  Country: JP (occurrence: JP)
  Receive Date: 20200514
  Receipt Date: 20200514
  Transmission Date: 20200714
  Serious: Yes (Other)
  Sender: FDA-Public Use
  Company Number: JP-PFIZER INC-2020167135

PATIENT
  Age: 67 Year
  Sex: Female

DRUGS (4)
  1. ALENDRONATE SODIUM HYDRATE [Suspect]
     Active Substance: ALENDRONATE SODIUM
     Indication: OSTEOPOROSIS PROPHYLAXIS
     Dosage: 35 MG, WEEKLY
  2. PREDNISOLONE. [Suspect]
     Active Substance: PREDNISOLONE
     Dosage: 3 MG, DAILY
  3. METHOTREXATE. [Suspect]
     Active Substance: METHOTREXATE
     Indication: RHEUMATOID ARTHRITIS
     Dosage: UNK, WEEKLY (AT A VARIABLE DOSE OF BETWEEN 5 AND 12.5 MG/WEEK)
  4. PREDNISOLONE. [Suspect]
     Active Substance: PREDNISOLONE
     Indication: RHEUMATOID ARTHRITIS
     Dosage: UNK UNK, DAILY (AT A VARIABLE DOSE OF BETWEEN 2.5 AND 10 MG/DAY)

REACTIONS (2)
  - Osteonecrosis of jaw [Recovered/Resolved]
  - Lymphoproliferative disorder [Recovered/Resolved]
